FAERS Safety Report 7616504 (Version 2)
Quarter: 2014Q4

REPORT INFORMATION
  Report Type: Spontaneous
  Country: BE (occurrence: BE)
  Receive Date: 20101004
  Receipt Date: 20141121
  Transmission Date: 20150529
  Serious: Yes (Death, Hospitalization)
  Sender: FDA-Public Use
  Company Number: PHHY2010BE64051

PATIENT
  Age: 99 Year
  Sex: Female

DRUGS (4)
  1. VOLTAREN [Suspect]
     Active Substance: DICLOFENAC SODIUM
     Dosage: 75 MG, QD (FOR 04 DAYS)
     Route: 030
  2. LOSFERRON [Concomitant]
     Indication: PRODUCT USED FOR UNKNOWN INDICATION
     Dosage: UNK UKN, UNK
     Route: 065
  3. VOLTAREN [Suspect]
     Active Substance: DICLOFENAC SODIUM
     Indication: BACK PAIN
     Dosage: 75 MG, BID (FOR 02 DAYS)
     Route: 030
     Dates: start: 20090929
  4. PANADOL [Concomitant]
     Active Substance: ACETAMINOPHEN
     Indication: PRODUCT USED FOR UNKNOWN INDICATION
     Dosage: UNK UKN, UNK
     Route: 065

REACTIONS (5)
  - Abdominal pain [Fatal]
  - General physical health deterioration [Fatal]
  - Incorrect dose administered [Unknown]
  - Duodenal perforation [Fatal]
  - Abdominal distension [Fatal]
